FAERS Safety Report 6647568-2 (Version None)
Quarter: 2010Q1

REPORT INFORMATION
  Report Type: 
  Country: None (occurrence: None)
  Receive Date: 20100323
  Receipt Date: 20100323
  Transmission Date: 20100710
  Serious: No
  Sender: FDA-Public Use
  Company Number: None

PATIENT
  Age: 76 Year
  Sex: Male
  Weight: 76 kg

DRUGS (2)
  1. BEVACIZUMAB [Suspect]
     Indication: COLON CANCER
     Dosage: 500 MG IV
     Route: 042
     Dates: start: 20090501, end: 20090626
  2. CAPECITABINE [Suspect]
     Indication: COLON CANCER
     Dosage: 2000 MG BID PO
     Route: 048
     Dates: start: 20090501

REACTIONS (2)
  - HYPOAESTHESIA [None]
  - PULMONARY EMBOLISM [None]
